FAERS Safety Report 9847600 (Version 2)
Quarter: 2014Q1

REPORT INFORMATION
  Report Type: Spontaneous
  Country: CA (occurrence: CA)
  Receive Date: 20140128
  Receipt Date: 20140212
  Transmission Date: 20141002
  Serious: Yes (Other)
  Sender: FDA-Public Use
  Company Number: CA-ROCHE-1338883

PATIENT
  Age: 60 Year
  Sex: Female

DRUGS (8)
  1. XOLAIR [Suspect]
     Indication: ASTHMA
     Route: 058
     Dates: start: 20131031
  2. XOLAIR [Suspect]
     Route: 058
     Dates: start: 20131114
  3. XOLAIR [Suspect]
     Route: 058
     Dates: start: 20131128
  4. XOLAIR [Suspect]
     Route: 058
     Dates: start: 20131219
  5. XOLAIR [Suspect]
     Route: 058
     Dates: start: 20131231
  6. BENADRYL (CANADA) [Suspect]
     Indication: NASAL CONGESTION
     Route: 065
     Dates: start: 20131031
  7. BENADRYL (CANADA) [Suspect]
     Indication: THROAT IRRITATION
     Route: 065
     Dates: start: 20131114
  8. BENADRYL (CANADA) [Suspect]
     Route: 065
     Dates: start: 20140117

REACTIONS (22)
  - Anaphylactic shock [Unknown]
  - Nasal congestion [Recovered/Resolved]
  - Throat irritation [Recovered/Resolved]
  - Abdominal discomfort [Recovered/Resolved]
  - Influenza [Recovered/Resolved]
  - Gait disturbance [Not Recovered/Not Resolved]
  - Wheezing [Unknown]
  - Body temperature decreased [Unknown]
  - Movement disorder [Unknown]
  - Dry throat [Unknown]
  - Hypoaesthesia [Unknown]
  - Pain in extremity [Not Recovered/Not Resolved]
  - Headache [Unknown]
  - Dizziness [Unknown]
  - Nausea [Recovered/Resolved]
  - Influenza like illness [Recovered/Resolved]
  - Myalgia [Unknown]
  - Arthralgia [Unknown]
  - Cough [Unknown]
  - Dystonia [Unknown]
  - Joint stiffness [Unknown]
  - Musculoskeletal stiffness [Unknown]
